FAERS Safety Report 6026519-8 (Version None)
Quarter: 2009Q1

REPORT INFORMATION
  Report Type: 
  Country: None (occurrence: None)
  Receive Date: 20090102
  Receipt Date: 20081222
  Transmission Date: 20090719
  Serious: Yes (Other)
  Sender: FDA-Public Use
  Company Number: GB-ELI_LILLY_AND_COMPANY-GB200810003782

PATIENT
  Sex: Male

DRUGS (3)
  1. HUMALOG MIX 50/50 [Suspect]
     Indication: DIABETES MELLITUS
     Dosage: 36 UNITS EACH MORNING, 18 UNITS EACH AFTERNOON AND 16 UNITS EACH EVENING
     Route: 058
  2. HUMALOG MIX 50/50 [Suspect]
     Dosage: UNK, UNKNOWN
     Route: 058
  3. HUMALOG MIX 50/50 [Suspect]
     Dosage: 16 UNITS EACH AFTERNOON AND 14 UNITS EACH EVENING
     Route: 058
     Dates: start: 20081010

REACTIONS (1)
  - HYPERGLYCAEMIA [None]
